FAERS Safety Report 7568316-8 (Version None)
Quarter: 2011Q2

REPORT INFORMATION
  Report Type: 
  Country: None (occurrence: None)
  Receive Date: 20110623
  Receipt Date: 20110615
  Transmission Date: 20111010
  Serious: Yes (Hospitalization)
  Sender: FDA-Public Use
  Company Number: US-MILLENNIUM PHARMACEUTICALS, INC.-2011-02560

PATIENT
  Sex: Female
  Weight: 56.372 kg

DRUGS (25)
  1. BLOOD CELLS, PACKED HUMAN [Concomitant]
     Indication: ANAEMIA
     Dosage: UNK
     Route: 042
     Dates: start: 20110401, end: 20110401
  2. SODIUM CHLORIDE [Concomitant]
     Indication: DEHYDRATION
     Dosage: UNK L, UNK
     Route: 040
     Dates: start: 20110401, end: 20110401
  3. KAYEXALATE [Concomitant]
     Indication: PRODUCT USED FOR UNKNOWN INDICATION
  4. DEXAMETHASONE [Concomitant]
     Dosage: 1 MG, UNK
  5. OXYGEN [Concomitant]
     Indication: PRODUCT USED FOR UNKNOWN INDICATION
     Dosage: UNK
     Route: 045
  6. LANTUS [Concomitant]
     Indication: HYPERGLYCAEMIA
     Dosage: UNK
     Dates: start: 20110429
  7. VELCADE [Suspect]
     Indication: MULTIPLE MYELOMA
     Dosage: UNK
     Dates: start: 20100201, end: 20100530
  8. REVLIMID [Suspect]
     Indication: MULTIPLE MYELOMA
     Dosage: 15 MG, CYCLIC
     Route: 048
     Dates: start: 20110415, end: 20110502
  9. DEXAMETHASONE [Concomitant]
     Indication: PRODUCT USED FOR UNKNOWN INDICATION
     Dosage: 8 MG, QD
     Dates: start: 20110401
  10. TYLENOL (CAPLET) [Concomitant]
     Indication: PRODUCT USED FOR UNKNOWN INDICATION
     Dosage: 500 MG, PRN
  11. ASPIRIN [Concomitant]
     Indication: PRODUCT USED FOR UNKNOWN INDICATION
     Dosage: 325 MG, QD
  12. MEGACE [Concomitant]
     Indication: INCREASED APPETITE
     Dosage: UNK
     Dates: start: 20110101
  13. MORPHINE SULFATE [Concomitant]
     Indication: PRODUCT USED FOR UNKNOWN INDICATION
     Dosage: 50 MG, PRN
  14. COMPAZINE [Concomitant]
     Indication: PRODUCT USED FOR UNKNOWN INDICATION
     Dosage: 10 MG, PRN
  15. LEVAQUIN [Concomitant]
     Indication: HYPERGLYCAEMIA
  16. PARENTERAL [Concomitant]
     Indication: DEHYDRATION
     Dosage: UNK
     Route: 042
     Dates: start: 20110401, end: 20110401
  17. MS CONTIN [Concomitant]
     Indication: PRODUCT USED FOR UNKNOWN INDICATION
     Dosage: 30 MG, TID
  18. CALCIUM WITH VITAMIN D             /00944201/ [Concomitant]
     Indication: PRODUCT USED FOR UNKNOWN INDICATION
     Dosage: UNK
  19. BLOOD CELLS, PACKED HUMAN [Concomitant]
     Dosage: UNK
     Route: 042
     Dates: start: 20110503, end: 20110503
  20. GABAPENTIN [Concomitant]
     Indication: PRODUCT USED FOR UNKNOWN INDICATION
     Dosage: 300 MG, TID
  21. GLIPIZIDE [Concomitant]
     Indication: HYPERGLYCAEMIA
  22. INSULIN [Concomitant]
     Indication: HYPERGLYCAEMIA
     Dosage: UNK
     Dates: start: 20110401
  23. MORPHINE SULFATE [Concomitant]
     Dosage: 15 MG, PRN
  24. MAGNESIUM [Concomitant]
     Indication: HYPOMAGNESAEMIA
     Dosage: UNK
     Dates: start: 20110401
  25. OMEPRAZOLE [Concomitant]
     Indication: PROPHYLAXIS

REACTIONS (25)
  - MYOPATHY [None]
  - COMPRESSION FRACTURE [None]
  - MENTAL STATUS CHANGES [None]
  - CONSTIPATION [None]
  - SEPSIS [None]
  - HYPEROSMOLAR STATE [None]
  - HYPOGLYCAEMIA [None]
  - TYPE 2 DIABETES MELLITUS [None]
  - METABOLIC ACIDOSIS [None]
  - ANXIETY [None]
  - BACK PAIN [None]
  - HYPONATRAEMIA [None]
  - ASTHENIA [None]
  - IRON DEFICIENCY ANAEMIA [None]
  - ENTEROBACTER BACTERAEMIA [None]
  - DECREASED APPETITE [None]
  - HYPOMAGNESAEMIA [None]
  - NEUROTOXICITY [None]
  - HYPERKALAEMIA [None]
  - HYPOPHOSPHATAEMIA [None]
  - MUSCULAR WEAKNESS [None]
  - RENAL FAILURE ACUTE [None]
  - MALNUTRITION [None]
  - HYPERGLYCAEMIA [None]
  - TOBACCO ABUSE [None]
